FAERS Safety Report 11202925 (Version 1)
Quarter: 2015Q2

REPORT INFORMATION
  Report Type: Spontaneous
  Country: GB (occurrence: GB)
  Receive Date: 20150619
  Receipt Date: 20150619
  Transmission Date: 20150821
  Serious: Yes (Other)
  Sender: FDA-Public Use
  Company Number: GB-ABBVIE-15K-167-1408778-00

PATIENT
  Age: 55 Year
  Sex: Male

DRUGS (1)
  1. HUMIRA [Suspect]
     Active Substance: ADALIMUMAB
     Indication: ANKYLOSING SPONDYLITIS
     Route: 058
     Dates: start: 20110412, end: 20150520

REACTIONS (5)
  - Vocal cord leukoplakia [Not Recovered/Not Resolved]
  - Drug prescribing error [Unknown]
  - Laryngeal dysplasia [Not Recovered/Not Resolved]
  - Laryngeal dysplasia [Recovered/Resolved]
  - Laryngeal cancer stage IV [Not Recovered/Not Resolved]

NARRATIVE: CASE EVENT DATE: 201305
